FAERS Safety Report 15001655 (Version 1)
Quarter: 2018Q2

REPORT INFORMATION
  Report Type: Spontaneous
  Country: US (occurrence: US)
  Receive Date: 20180524
  Receipt Date: 20180524
  Transmission Date: 20180711
  Serious: Yes (Death, Life-Threatening, Hospitalization, Disabling)
  Sender: FDA-Public Use
  Company Number: None

PATIENT
  Age: 55 Year
  Sex: Male

DRUGS (1)
  1. NEXAVAR [Suspect]
     Active Substance: SORAFENIB
     Indication: HEPATIC CANCER
     Dosage: ?          QUANTITY:2 DF DOSAGE FORM;?
     Route: 048
     Dates: start: 20180510, end: 20180516

REACTIONS (10)
  - Chemotherapeutic drug level decreased [None]
  - Dyspnoea [None]
  - Mouth haemorrhage [None]
  - Aphasia [None]
  - Paresis [None]
  - Gait inability [None]
  - Dysphagia [None]
  - Fatigue [None]
  - Paraparesis [None]
  - Confusional state [None]

NARRATIVE: CASE EVENT DATE: 20180510
